FAERS Safety Report 6843043-0 (Version None)
Quarter: 2010Q3

REPORT INFORMATION
  Report Type: 
  Country: None (occurrence: None)
  Receive Date: 20100712
  Receipt Date: 20100701
  Transmission Date: 20110219
  Serious: Yes (Hospitalization, Other)
  Sender: FDA-Public Use
  Company Number: 2009-GWUS-0719

PATIENT
  Age: 47 Year
  Sex: Female
  Weight: 71.6683 kg

DRUGS (7)
  1. ALDARA [Suspect]
     Indication: ACTINIC KERATOSIS
     Dosage: 5 PCT; TIW; TOP
     Route: 061
     Dates: start: 20090921, end: 20091012
  2. CYMBALTA [Concomitant]
  3. ESTRADIOL [Concomitant]
  4. SYNTHROID [Concomitant]
  5. VITAMIN A [Concomitant]
  6. TEMAZEPAM [Concomitant]
  7. VALIUM [Concomitant]

REACTIONS (50)
  - ABDOMINAL DISTENSION [None]
  - ABDOMINAL PAIN [None]
  - AMNESIA [None]
  - ARTHRALGIA [None]
  - ASTHENIA [None]
  - BLISTER [None]
  - BLOOD PRESSURE INCREASED [None]
  - BUNION [None]
  - CHEST DISCOMFORT [None]
  - COMA [None]
  - CONTUSION [None]
  - CYST [None]
  - DEAFNESS UNILATERAL [None]
  - DEPRESSION [None]
  - DIZZINESS [None]
  - DRUG ERUPTION [None]
  - DRUG HYPERSENSITIVITY [None]
  - DYSPHONIA [None]
  - DYSPNOEA [None]
  - EAR DISCOMFORT [None]
  - EYE PAIN [None]
  - FALL [None]
  - FATIGUE [None]
  - GASTRITIS [None]
  - HEADACHE [None]
  - HYPERHIDROSIS [None]
  - HYPOACUSIS [None]
  - HYPOAESTHESIA FACIAL [None]
  - HYPOAESTHESIA ORAL [None]
  - INFLUENZA LIKE ILLNESS [None]
  - INSOMNIA [None]
  - JOINT SPRAIN [None]
  - MIGRAINE [None]
  - MYALGIA [None]
  - NASOPHARYNGITIS [None]
  - PAIN [None]
  - PAIN IN EXTREMITY [None]
  - PARAESTHESIA [None]
  - PHONOPHOBIA [None]
  - PHOTOPHOBIA [None]
  - POST-TRAUMATIC STRESS DISORDER [None]
  - RESPIRATORY ALKALOSIS [None]
  - RHINORRHOEA [None]
  - SHOCK [None]
  - SWELLING FACE [None]
  - THROAT TIGHTNESS [None]
  - TINNITUS [None]
  - TREMOR [None]
  - VASCULITIS [None]
  - VERTIGO [None]
